FAERS Safety Report 4629348-2 (Version None)
Quarter: 2005Q2

REPORT INFORMATION
  Report Type: 
  Country: None (occurrence: None)
  Receive Date: 20050404
  Receipt Date: 20050314
  Transmission Date: 20051028
  Serious: Yes (Other)
  Sender: FDA-Public Use
  Company Number: B0374588B

PATIENT
  Age: 26 Year
  Sex: Female

DRUGS (4)
  1. ZIDOVUDINE [Suspect]
     Indication: ANTIVIRAL PROPHYLAXIS
  2. LAMIVUDINE [Suspect]
     Indication: ANTIVIRAL PROPHYLAXIS
  3. ZIDOVUDINE [Suspect]
     Indication: ANTIVIRAL PROPHYLAXIS
     Dosage: INTRAVENOUS
     Route: 042
  4. NELFINAVIR MESYLATE (NELFINAVIR MESYLATE) [Suspect]
     Indication: HIV INFECTION

REACTIONS (3)
  - CAESAREAN SECTION [None]
  - COMPLICATIONS OF MATERNAL EXPOSURE TO THERAPEUTIC DRUGS [None]
  - ECLAMPSIA [None]
